FAERS Safety Report 16324313 (Version 1)
Quarter: 2019Q2

REPORT INFORMATION
  Report Type: Spontaneous
  Country: US (occurrence: US)
  Receive Date: 20190517
  Receipt Date: 20190517
  Transmission Date: 20190711
  Serious: Yes (Other)
  Sender: FDA-Public Use
  Company Number: US-TERSERA THERAPEUTICS LLC-2019TRS000711

PATIENT

DRUGS (4)
  1. PRIALT [Suspect]
     Active Substance: ZICONOTIDE ACETATE
     Indication: FACIAL PAIN
     Dosage: 2.5 ML (2.5 ?G AT 1 ?G PER ML)
     Route: 037
  2. PRIALT [Suspect]
     Active Substance: ZICONOTIDE ACETATE
     Dosage: 1.5 MICROGRAM, QD
     Route: 037
  3. PRIALT [Suspect]
     Active Substance: ZICONOTIDE ACETATE
     Dosage: 1.0 MICROGRAM, QD
     Route: 037
  4. PRIALT [Suspect]
     Active Substance: ZICONOTIDE ACETATE
     Dosage: 2 MICROGRAM, QD
     Route: 037

REACTIONS (4)
  - Cerebrospinal fluid leakage [Unknown]
  - Pseudomeningocele [Unknown]
  - Drug ineffective [Recovered/Resolved]
  - Implant site swelling [Unknown]
